FAERS Safety Report 7784309-X (Version None)
Quarter: 2011Q3

REPORT INFORMATION
  Report Type: 
  Country: None (occurrence: None)
  Receive Date: 20110928
  Receipt Date: 20110915
  Transmission Date: 20111222
  Serious: Yes (Hospitalization, Other)
  Sender: FDA-Public Use
  Company Number: PHHY2011DE82919

PATIENT
  Age: 49 Year

DRUGS (3)
  1. BASILIXIMAB [Suspect]
     Indication: RENAL TRANSPLANT
     Dosage: UNK UKN, UNK
  2. TACROLIMUS [Concomitant]
     Indication: RENAL TRANSPLANT
     Dosage: UNK UKN, UNK
  3. MYCOPHENOLIC ACID [Suspect]
     Indication: RENAL TRANSPLANT
     Dosage: UNK UKN, UNK

REACTIONS (6)
  - KIDNEY TRANSPLANT REJECTION [None]
  - ACUTE FEBRILE NEUTROPHILIC DERMATOSIS [None]
  - PYREXIA [None]
  - C-REACTIVE PROTEIN INCREASED [None]
  - RASH MACULO-PAPULAR [None]
  - LEUKOCYTOSIS [None]
